FAERS Safety Report 5113045-3 (Version None)
Quarter: 2006Q3

REPORT INFORMATION
  Report Type: 
  Country: None (occurrence: None)
  Receive Date: 20060922
  Receipt Date: 20060920
  Transmission Date: 20061208
  Serious: Yes (Death, Hospitalization)
  Sender: FDA-Public Use
  Company Number: BR-BOEHRINGER INGELHEIM PHARMACEUTICALS, INC.-2006-BP-11049BR

PATIENT
  Age: 75 Year
  Sex: Male

DRUGS (3)
  1. COMBIVENT [Suspect]
     Indication: EMPHYSEMA
     Route: 055
     Dates: start: 20020101
  2. FUROSEMIDA [Concomitant]
  3. CIMETIDINA [Concomitant]

REACTIONS (3)
  - CARDIAC DISORDER [None]
  - EMPHYSEMA [None]
  - POLLAKIURIA [None]
